FAERS Safety Report 14651406 (Version 1)
Quarter: 2018Q1

REPORT INFORMATION
  Report Type: Spontaneous
  Country: US (occurrence: US)
  Receive Date: 20180316
  Receipt Date: 20180316
  Transmission Date: 20180509
  Serious: No
  Sender: FDA-Public Use
  Company Number: None

PATIENT
  Age: 56 Year
  Sex: Male
  Weight: 80.1 kg

DRUGS (2)
  1. PRILOSEC OTC [Concomitant]
     Active Substance: OMEPRAZOLE MAGNESIUM
  2. SILDENAFIL 20 MG TABLET [Suspect]
     Active Substance: SILDENAFIL
     Indication: ERECTILE DYSFUNCTION
     Dosage: ?          QUANTITY:5 TABLET(S);?
     Route: 048
     Dates: start: 20171016, end: 20180310

REACTIONS (9)
  - Insomnia [None]
  - Depression [None]
  - Aggression [None]
  - Product substitution issue [None]
  - Dysuria [None]
  - Urinary tract infection [None]
  - Mental disorder [None]
  - Dyspareunia [None]
  - Anxiety [None]

NARRATIVE: CASE EVENT DATE: 20171016
